FAERS Safety Report 13678050 (Version 1)
Quarter: 2017Q2

REPORT INFORMATION
  Report Type: Spontaneous
  Country: US (occurrence: US)
  Receive Date: 20170622
  Receipt Date: 20170622
  Transmission Date: 20170830
  Serious: No
  Sender: FDA-Public Use
  Company Number: US-009507513-1706USA009782

PATIENT
  Sex: Female

DRUGS (1)
  1. HYDROCORTONE [Suspect]
     Active Substance: HYDROCORTISONE
     Dosage: UNK
     Route: 048

REACTIONS (1)
  - Rash [Unknown]
